FAERS Safety Report 10217316 (Version 6)
Quarter: 2015Q3

REPORT INFORMATION
  Report Type: Spontaneous
  Country: US (occurrence: US)
  Receive Date: 20140604
  Receipt Date: 20150824
  Transmission Date: 20151125
  Serious: Yes (Hospitalization, Disabling)
  Sender: FDA-Public Use
  Company Number: US-ROCHE-1410288

PATIENT
  Age: 53 Year
  Sex: Female
  Weight: 53.57 kg

DRUGS (13)
  1. NEULASTA [Concomitant]
     Active Substance: PEGFILGRASTIM
     Route: 065
     Dates: start: 20130416, end: 20130417
  2. HERCEPTIN [Suspect]
     Active Substance: TRASTUZUMAB
     Indication: BREAST CANCER
     Route: 042
     Dates: start: 20130417, end: 20130820
  3. TAXOTERE [Concomitant]
     Active Substance: DOCETAXEL
     Indication: BREAST CANCER
     Route: 042
     Dates: start: 20130417, end: 20130722
  4. HERCEPTIN [Suspect]
     Active Substance: TRASTUZUMAB
     Indication: HER-2 POSITIVE BREAST CANCER
  5. CARBOPLATIN. [Concomitant]
     Active Substance: CARBOPLATIN
     Indication: BREAST CANCER
     Dosage: AUC 6
     Route: 042
     Dates: start: 20130417, end: 20130722
  6. PREDNISONE. [Concomitant]
     Active Substance: PREDNISONE
  7. SOLU-CORTEF [Concomitant]
     Active Substance: HYDROCORTISONE SODIUM SUCCINATE
  8. GABAPENTIN. [Concomitant]
     Active Substance: GABAPENTIN
  9. COMPAZINE [Concomitant]
     Active Substance: PROCHLORPERAZINE MALEATE
     Route: 065
     Dates: start: 20130415
  10. DEXAMETHASONE. [Concomitant]
     Active Substance: DEXAMETHASONE
     Route: 065
     Dates: start: 20130415, end: 20130725
  11. ULTRAM [Concomitant]
     Active Substance: TRAMADOL HYDROCHLORIDE
  12. NEURONTIN [Concomitant]
     Active Substance: GABAPENTIN
     Route: 065
     Dates: start: 20130827
  13. ZOFRAN [Concomitant]
     Active Substance: ONDANSETRON HYDROCHLORIDE
     Route: 065
     Dates: start: 20130415

REACTIONS (16)
  - Weight increased [Unknown]
  - Musculoskeletal stiffness [Not Recovered/Not Resolved]
  - Muscular weakness [Recovered/Resolved with Sequelae]
  - Pain [Not Recovered/Not Resolved]
  - Myalgia [Recovered/Resolved with Sequelae]
  - Muscle atrophy [Unknown]
  - Hypoaesthesia [Unknown]
  - Post-traumatic neck syndrome [Recovered/Resolved]
  - Abasia [Unknown]
  - Periarthritis [Not Recovered/Not Resolved]
  - Pericardial effusion [Unknown]
  - Peripheral coldness [Unknown]
  - Drug specific antibody present [Unknown]
  - Depression [Unknown]
  - Pain in extremity [Not Recovered/Not Resolved]
  - Atrophy [Unknown]

NARRATIVE: CASE EVENT DATE: 20130417
